FAERS Safety Report 5825374-6 (Version None)
Quarter: 2008Q3

REPORT INFORMATION
  Report Type: 
  Country: None (occurrence: None)
  Receive Date: 20080725
  Receipt Date: 20080725
  Transmission Date: 20090109
  Serious: Yes (Disabling, Other)
  Sender: FDA-Public Use
  Company Number: None

PATIENT
  Age: 58 Year
  Sex: Female
  Weight: 53.978 kg

DRUGS (2)
  1. LYRICA [Suspect]
     Indication: NERVE INJURY
     Dosage: 150 MG. 2 TIMES A DAY
     Dates: start: 20041218, end: 20080322
  2. LYRICA [Suspect]
     Indication: NEUROPATHY PERIPHERAL
     Dosage: 150 MG. 2 TIMES A DAY
     Dates: start: 20041218, end: 20080322

REACTIONS (2)
  - APHONIA [None]
  - GASTROOESOPHAGEAL REFLUX DISEASE [None]
